FAERS Safety Report 17287792 (Version 2)
Quarter: 2020Q1

REPORT INFORMATION
  Report Type: Report from Study
  Country: IT (occurrence: IT)
  Receive Date: 20200120
  Receipt Date: 20200326
  Transmission Date: 20200409
  Serious: Yes (Other)
  Sender: FDA-Public Use
  Company Number: IT-GLAXOSMITHKLINE-IT2020005941

PATIENT
  Age: 43 Year
  Sex: Male

DRUGS (4)
  1. AMOXICILLIN AND CLAVULANATE POTASSIUM [Suspect]
     Active Substance: AMOXICILLIN\CLAVULANATE POTASSIUM
     Indication: SINUSITIS
     Dosage: 1 DF, CYC
     Route: 048
     Dates: start: 20191209, end: 20191209
  2. ARTROSILENE [Concomitant]
     Active Substance: KETOPROFEN
     Indication: MIGRAINE
     Route: 065
  3. FLUIBRON [Suspect]
     Active Substance: AMBROXOL HYDROCHLORIDE
     Indication: SINUSITIS
     Dosage: CYCLICAL
     Route: 055
     Dates: start: 20191209
  4. CLENIL [Suspect]
     Active Substance: BECLOMETHASONE DIPROPIONATE
     Indication: SINUSITIS
     Dosage: CYCLICAL
     Route: 055
     Dates: start: 20191209

REACTIONS (7)
  - Urticaria [Recovering/Resolving]
  - Drug interaction [Recovering/Resolving]
  - Laryngeal oedema [Recovering/Resolving]
  - Oedema mouth [Recovering/Resolving]
  - Pruritus [Recovering/Resolving]
  - Angioedema [Recovering/Resolving]
  - Dyspnoea [Recovering/Resolving]

NARRATIVE: CASE EVENT DATE: 20191209
